FAERS Safety Report 9641319 (Version 2)
Quarter: 2014Q1

REPORT INFORMATION
  Report Type: Spontaneous
  Country: TR (occurrence: TR)
  Receive Date: 20131023
  Receipt Date: 20140311
  Transmission Date: 20141002
  Serious: Yes (Hospitalization)
  Sender: FDA-Public Use
  Company Number: TR-SA-2013SA104502

PATIENT
  Age: 43 Year
  Sex: Female

DRUGS (4)
  1. CLEXANE [Suspect]
     Indication: PRODUCT USED FOR UNKNOWN INDICATION
     Route: 065
     Dates: start: 20130419
  2. TRASTUZUMAB [Concomitant]
     Indication: GASTRIC CANCER
     Route: 042
     Dates: start: 20130419
  3. OXALIPLATIN [Concomitant]
     Indication: GASTRIC CANCER
     Dosage: DOSE-50/100 MG
     Route: 042
     Dates: start: 20130419
  4. CAPECITABINE [Concomitant]
     Indication: GASTRIC CANCER
     Dosage: FREQUENCY-1X1/6X1
     Route: 048
     Dates: start: 20130419

REACTIONS (3)
  - Nausea [Not Recovered/Not Resolved]
  - Vomiting [Not Recovered/Not Resolved]
  - Hypophagia [Not Recovered/Not Resolved]
